FAERS Safety Report 6121287-3 (Version None)
Quarter: 2009Q1

REPORT INFORMATION
  Report Type: 
  Country: None (occurrence: None)
  Receive Date: 20090312
  Receipt Date: 20090312
  Transmission Date: 20090719
  Serious: Yes (Other)
  Sender: FDA-Public Use
  Company Number: None

PATIENT
  Age: 39 Year
  Sex: Female
  Weight: 102.0593 kg

DRUGS (2)
  1. EFFEXOR XR [Suspect]
     Indication: ANXIETY
     Dosage: 150 MG NIGHTLY PO
     Route: 048
     Dates: start: 19990101, end: 20090308
  2. EFFEXOR XR [Suspect]
     Indication: DEPRESSION
     Dosage: 150 MG NIGHTLY PO
     Route: 048
     Dates: start: 19990101, end: 20090308

REACTIONS (7)
  - ABNORMAL DREAMS [None]
  - DIZZINESS [None]
  - DRUG WITHDRAWAL SYNDROME [None]
  - HEART RATE INCREASED [None]
  - PALPITATIONS [None]
  - PARAESTHESIA [None]
  - VERTIGO [None]
